FAERS Safety Report 11911100 (Version 1)
Quarter: 2016Q1

REPORT INFORMATION
  Report Type: Other
  Country: US (occurrence: US)
  Receive Date: 20160112
  Receipt Date: 20160112
  Transmission Date: 20160526
  Serious: Yes (Death, Hospitalization, Disabling, Other)
  Sender: FDA-Public Use
  Company Number: US-ACORDA-ACO_112820_2015

PATIENT
  Sex: Female

DRUGS (3)
  1. AMPYRA [Suspect]
     Active Substance: DALFAMPRIDINE
     Indication: GAIT DISTURBANCE
     Dosage: 10 MG, BID
     Route: 048
  2. DEXMETHASONE [Concomitant]
     Active Substance: DEXAMETHASONE
     Indication: PRODUCT USED FOR UNKNOWN INDICATION
     Dosage: UNK
     Route: 048
  3. AVONEX [Concomitant]
     Active Substance: INTERFERON BETA-1A
     Indication: MULTIPLE SCLEROSIS
     Dosage: 30 ?G, WEEKLY
     Route: 030

REACTIONS (19)
  - Dyskinesia [Unknown]
  - Obesity [Unknown]
  - Paraesthesia [Unknown]
  - Intestinal obstruction [Unknown]
  - Memory impairment [Unknown]
  - Pain [Unknown]
  - Coma [Unknown]
  - Walking aid user [Unknown]
  - Intervertebral disc degeneration [Unknown]
  - Depression [Unknown]
  - Urinary incontinence [Unknown]
  - Hypoaesthesia [Unknown]
  - Peritonitis [Unknown]
  - Abasia [Unknown]
  - Wheelchair user [Unknown]
  - Crying [Unknown]
  - Death [Fatal]
  - Sepsis [Unknown]
  - Asthenia [Unknown]
